FAERS Safety Report 5494191-1 (Version None)
Quarter: 2007Q4

REPORT INFORMATION
  Report Type: 
  Country: None (occurrence: None)
  Receive Date: 20071024
  Receipt Date: 20071015
  Transmission Date: 20080405
  Serious: Yes (Other)
  Sender: FDA-Public Use
  Company Number: PHBS2007NZ17383

PATIENT
  Age: 51 Year
  Sex: Male

DRUGS (4)
  1. CLOZAPINE [Suspect]
     Indication: SCHIZOPHRENIA
     Dosage: 50 MG MANE, 400 MG NOCTE
     Route: 048
     Dates: start: 20041223
  2. LITHIUM CARBONATE [Concomitant]
  3. PAROXETINE [Concomitant]
  4. OXYBUTYNIN CHLORIDE [Suspect]

REACTIONS (3)
  - ANTIPSYCHOTIC DRUG LEVEL ABOVE THERAPEUTIC [None]
  - DRUG INTERACTION [None]
  - NOCTURIA [None]
